FAERS Safety Report 6713037-4 (Version None)
Quarter: 2010Q2

REPORT INFORMATION
  Report Type: 
  Country: None (occurrence: None)
  Receive Date: 20100505
  Receipt Date: 20100505
  Transmission Date: 20101027
  Serious: Yes (Other)
  Sender: FDA-Public Use
  Company Number: None

PATIENT
  Sex: Female
  Weight: 21.7727 kg

DRUGS (2)
  1. CHILDREN'S TYLENOL 80 MG PER 1/2 TEASPOON MCNEIL- PPC [Suspect]
     Indication: PROCEDURAL PAIN
     Dosage: 2 TSP EVERY 4 HOURS
     Dates: start: 20100501, end: 20100503
  2. CHILDREN'S TYLENOL 80 MG PER 1/2 TEASPOON MCNEIL- PPC [Suspect]
     Indication: TOOTH ABSCESS
     Dosage: 2 TSP EVERY 4 HOURS
     Dates: start: 20100501, end: 20100503

REACTIONS (2)
  - PRODUCT QUALITY ISSUE [None]
  - URTICARIA [None]
